FAERS Safety Report 6901728-1 (Version None)
Quarter: 2010Q3

REPORT INFORMATION
  Report Type: 
  Country: None (occurrence: None)
  Receive Date: 20100803
  Receipt Date: 20080305
  Transmission Date: 20110219
  Serious: No
  Sender: FDA-Public Use
  Company Number: US-PFIZER INC-2008021981

PATIENT
  Sex: Male
  Weight: 67.1 kg

DRUGS (4)
  1. LYRICA [Suspect]
     Indication: FIBROMYALGIA
     Dates: end: 20080101
  2. AMOXICILLIN [Concomitant]
     Dates: start: 20080101
  3. ALEVE (CAPLET) [Concomitant]
  4. TYLENOL [Concomitant]

REACTIONS (6)
  - BODY HEIGHT DECREASED [None]
  - DRUG WITHDRAWAL SYNDROME [None]
  - HEADACHE [None]
  - PRURITUS [None]
  - RASH [None]
  - TOOTH EXTRACTION [None]
